FAERS Safety Report 12999521 (Version 1)
Quarter: 2016Q4

REPORT INFORMATION
  Report Type: Spontaneous
  Country: US (occurrence: US)
  Receive Date: 20161205
  Receipt Date: 20161205
  Transmission Date: 20170207
  Serious: No
  Sender: FDA-Public Use
  Company Number: US-MIST-NRP-2016-0019

PATIENT
  Age: 93 Year
  Sex: Female

DRUGS (1)
  1. NITROGLYCERIN LINGUAL AEROSOL; ROUSES POINT PHARMACEUTICALS, LLC [Suspect]
     Active Substance: NITROGLYCERIN
     Indication: CHEST PAIN
     Dosage: AS NEEDED

REACTIONS (1)
  - Product container issue [Unknown]

NARRATIVE: CASE EVENT DATE: 20160621
